FAERS Safety Report 14934590 (Version 3)
Quarter: 2018Q2

REPORT INFORMATION
  Report Type: Report from Study
  Country: FR (occurrence: FR)
  Receive Date: 20180524
  Receipt Date: 20180622
  Transmission Date: 20180711
  Serious: Yes (Hospitalization, Other)
  Sender: FDA-Public Use
  Company Number: FR-GILEAD-2018-0339963

PATIENT
  Age: 59 Year
  Sex: Male
  Weight: 30 kg

DRUGS (5)
  1. GAZYVARO [Suspect]
     Active Substance: OBINUTUZUMAB
     Indication: CHRONIC LYMPHOCYTIC LEUKAEMIA
     Dosage: 1000 MG, CYCLICAL (D1C1) (2-4 CYCLES ENSUED)
     Route: 041
     Dates: start: 20171214, end: 20180509
  2. ZELITREX [Concomitant]
     Active Substance: VALACYCLOVIR HYDROCHLORIDE
     Dosage: 500 MG, QD
     Dates: start: 20171214
  3. IDELALISIB [Suspect]
     Active Substance: IDELALISIB
     Indication: WALDENSTROM^S MACROGLOBULINAEMIA
     Dosage: 150 MG, BID
     Route: 048
     Dates: start: 20171214, end: 20180410
  4. PENTACARINAT [Concomitant]
     Active Substance: PENTAMIDINE ISETHIONATE
     Dosage: 1 DF, EVERY MONTH
     Route: 055
     Dates: start: 20180208, end: 20180410
  5. SPECIAFOLDINE [Concomitant]
     Active Substance: FOLIC ACID
     Dosage: 10 MG, UNK
     Route: 048
     Dates: start: 20171214

REACTIONS (4)
  - Diarrhoea [Recovered/Resolved]
  - Acute kidney injury [Unknown]
  - Hyponatraemia [Unknown]
  - Hypokalaemia [Unknown]

NARRATIVE: CASE EVENT DATE: 20180504
